FAERS Safety Report 10103226 (Version 1)
Quarter: 2014Q2

REPORT INFORMATION
  Report Type: Spontaneous
  Country: JP (occurrence: JP)
  Receive Date: 20140424
  Receipt Date: 20140424
  Transmission Date: 20141212
  Serious: Yes (Hospitalization)
  Sender: FDA-Public Use
  Company Number: JP-GLAXOSMITHKLINE-B0967475A

PATIENT
  Age: 46 Year
  Sex: Female
  Weight: 55 kg

DRUGS (7)
  1. HYCAMTIN [Suspect]
     Indication: OVARIAN CANCER RECURRENT
     Dosage: 1.25MGM2 PER DAY
     Route: 042
     Dates: start: 20130919, end: 20131104
  2. KYTRIL [Suspect]
     Indication: VOMITING
     Dosage: 3MG PER DAY
     Route: 042
     Dates: start: 20130919, end: 20131104
  3. DOMPERIDONE [Suspect]
     Indication: VOMITING
     Route: 048
     Dates: start: 20130919, end: 20131105
  4. PRIMPERAN [Suspect]
     Indication: VOMITING
     Route: 042
     Dates: start: 20130920, end: 20131103
  5. ZYPREXA [Concomitant]
     Dosage: 2.5MG PER DAY
     Route: 048
     Dates: start: 20130922
  6. SENIRAN [Concomitant]
     Dosage: 3MG PER DAY
     Route: 054
     Dates: start: 20131030, end: 20131103
  7. DEXART [Concomitant]
     Dosage: 6.6MG PER DAY
     Route: 042
     Dates: start: 20131031, end: 20131104

REACTIONS (11)
  - Nausea [Recovering/Resolving]
  - Decreased appetite [Recovering/Resolving]
  - Fatigue [Recovering/Resolving]
  - White blood cell count decreased [Recovered/Resolved]
  - Neutrophil count decreased [Recovered/Resolved]
  - Red blood cell count decreased [Recovering/Resolving]
  - Anaemia [Recovering/Resolving]
  - Platelet count decreased [Recovered/Resolved]
  - Abdominal pain [Recovering/Resolving]
  - Constipation [Recovering/Resolving]
  - Abdominal pain upper [Recovering/Resolving]
